FAERS Safety Report 20325804 (Version 2)
Quarter: 2022Q1

REPORT INFORMATION
  Report Type: Spontaneous
  Country: JP (occurrence: JP)
  Receive Date: 20220112
  Receipt Date: 20220211
  Transmission Date: 20220423
  Serious: Yes (Other)
  Sender: FDA-Public Use
  Company Number: JP-DSJP-DSJ-2022-100484

PATIENT
  Age: 94 Year
  Sex: Female

DRUGS (2)
  1. DENOSUMAB [Suspect]
     Active Substance: DENOSUMAB
     Indication: Osteoporosis
     Dosage: 60 MILLIGRAM, Q6MO
     Route: 058
     Dates: start: 20211005
  2. ELDECALCITOL [Concomitant]
     Active Substance: ELDECALCITOL
     Dosage: UNK
     Route: 048

REACTIONS (2)
  - Spinal compression fracture [Unknown]
  - Spinal compression fracture [Unknown]

NARRATIVE: CASE EVENT DATE: 20210101
